FAERS Safety Report 14418274 (Version 1)
Quarter: 2018Q1

REPORT INFORMATION
  Report Type: Spontaneous
  Country: US (occurrence: US)
  Receive Date: 20180122
  Receipt Date: 20180122
  Transmission Date: 20180509
  Serious: Yes (Other)
  Sender: FDA-Public Use
  Company Number: US-MYLANLABS-2018M1004113

PATIENT
  Age: 51 Year
  Sex: Female
  Weight: 82 kg

DRUGS (6)
  1. FAMOTIDINE. [Concomitant]
     Active Substance: FAMOTIDINE
     Indication: GASTROOESOPHAGEAL REFLUX DISEASE
     Dosage: UNK, AT BEDTIME
     Dates: start: 20171215
  2. CLONAZEPAM. [Concomitant]
     Active Substance: CLONAZEPAM
     Indication: PRODUCT USED FOR UNKNOWN INDICATION
  3. PRAZOSIN HYDROCHLORIDE CAPSULES USP [Suspect]
     Active Substance: PRAZOSIN HYDROCHLORIDE
     Indication: POST-TRAUMATIC STRESS DISORDER
  4. GUAIFENESIN. [Concomitant]
     Active Substance: GUAIFENESIN
     Indication: PRODUCT USED FOR UNKNOWN INDICATION
     Dosage: AT BEDTIME
  5. LEVOCETIRIZINE [Concomitant]
     Active Substance: LEVOCETIRIZINE
     Indication: PRODUCT USED FOR UNKNOWN INDICATION
     Dosage: UNK,AT BEDTIME
  6. PRAZOSIN HYDROCHLORIDE CAPSULES USP [Suspect]
     Active Substance: PRAZOSIN HYDROCHLORIDE
     Indication: NIGHTMARE
     Dosage: 1 MG, UNK
     Route: 048
     Dates: start: 20171222, end: 20180111

REACTIONS (5)
  - Loss of consciousness [Recovered/Resolved]
  - Pollakiuria [Recovered/Resolved]
  - Hypotension [Recovered/Resolved]
  - Off label use [Recovered/Resolved]
  - Fall [Recovered/Resolved]

NARRATIVE: CASE EVENT DATE: 20180111
